FAERS Safety Report 23087949 (Version 5)
Quarter: 2025Q1

REPORT INFORMATION
  Report Type: Spontaneous
  Country: US (occurrence: US)
  Receive Date: 20231020
  Receipt Date: 20250124
  Transmission Date: 20250409
  Serious: Yes (Other)
  Sender: BLUEPRINT MEDICINES
  Company Number: US-Blueprint Medicines Corporation-SP-US-2023-001637

PATIENT
  Age: 73 Year
  Sex: Female

DRUGS (3)
  1. AYVAKIT [Suspect]
     Active Substance: AVAPRITINIB
     Indication: Advanced systemic mastocytosis
     Route: 048
     Dates: start: 20230320
  2. AYVAKIT [Suspect]
     Active Substance: AVAPRITINIB
     Indication: Advanced systemic mastocytosis
     Route: 048
     Dates: start: 20230320
  3. AYVAKIT [Suspect]
     Active Substance: AVAPRITINIB
     Indication: Malignant mast cell neoplasm
     Route: 065
     Dates: start: 20240207

REACTIONS (6)
  - Thyroid cancer [Not Recovered/Not Resolved]
  - Neoplasm malignant [Unknown]
  - Recurrent cancer [Not Recovered/Not Resolved]
  - Surgery [Recovered/Resolved]
  - Unevaluable event [Unknown]
  - Rash [Unknown]

NARRATIVE: CASE EVENT DATE: 20231201
